FAERS Safety Report 7408935-2 (Version None)
Quarter: 2011Q2

REPORT INFORMATION
  Report Type: 
  Country: None (occurrence: None)
  Receive Date: 20110407
  Receipt Date: 20110407
  Transmission Date: 20111010
  Serious: No
  Sender: FDA-Public Use
  Company Number: None

PATIENT
  Sex: Female

DRUGS (8)
  1. MESTINON [Concomitant]
  2. LEXAPRO [Concomitant]
  3. IMURON [Concomitant]
  4. CRESTOR [Concomitant]
  5. DIAZEPAM [Concomitant]
  6. PLAVIX [Concomitant]
  7. GAMMAGARD [Suspect]
     Indication: MYASTHENIA GRAVIS
     Dosage: 20 G AQ D X3 DAYS 5 WKS IV
     Route: 042
     Dates: start: 20110222
  8. ASPIRIN [Concomitant]

REACTIONS (2)
  - PAIN IN EXTREMITY [None]
  - NO REACTION ON PREVIOUS EXPOSURE TO DRUG [None]
